FAERS Safety Report 6380744-5 (Version None)
Quarter: 2009Q3

REPORT INFORMATION
  Report Type: 
  Country: None (occurrence: None)
  Receive Date: 20090929
  Receipt Date: 20090925
  Transmission Date: 20100115
  Serious: Yes (Other)
  Sender: FDA-Public Use
  Company Number: TW-ROXANE LABORATORIES, INC.-2009-RO-00991RO

PATIENT
  Age: 15 Year
  Sex: Female
  Weight: 65 kg

DRUGS (10)
  1. LITHIUM CARBONATE [Suspect]
     Indication: BIPOLAR I DISORDER
  2. LITHIUM CARBONATE [Suspect]
     Indication: MANIA
  3. ALPRAZOLAM [Suspect]
     Indication: BIPOLAR I DISORDER
  4. ALPRAZOLAM [Suspect]
     Indication: MANIA
  5. ZOLPIDEM [Suspect]
     Indication: BIPOLAR I DISORDER
  6. ZOLPIDEM [Suspect]
     Indication: MANIA
  7. CARBAMAZEPINE [Suspect]
     Indication: BIPOLAR I DISORDER
  8. CARBAMAZEPINE [Suspect]
     Indication: MANIA
  9. TOPIRAMATE [Concomitant]
     Indication: BIPOLAR I DISORDER
     Dosage: 600 MG
  10. TOPIRAMATE [Concomitant]
     Indication: MANIA

REACTIONS (1)
  - DRUG INEFFECTIVE [None]
